FAERS Safety Report 7441207-9 (Version None)
Quarter: 2011Q2

REPORT INFORMATION
  Report Type: 
  Country: None (occurrence: None)
  Receive Date: 20110428
  Receipt Date: 20110419
  Transmission Date: 20111010
  Serious: Yes (Hospitalization)
  Sender: FDA-Public Use
  Company Number: US-BIOGENIDEC-2010BI044540

PATIENT
  Age: 28 Year
  Sex: Female

DRUGS (6)
  1. TYSABRI [Suspect]
     Indication: MULTIPLE SCLEROSIS
     Route: 042
     Dates: start: 20100527
  2. FLUTICASONE PROPIONATE [Concomitant]
     Route: 045
  3. AVONEX [Concomitant]
     Indication: MULTIPLE SCLEROSIS
     Route: 030
     Dates: start: 20000101
  4. TYSABRI [Suspect]
     Route: 042
     Dates: start: 20080814, end: 20090825
  5. CITALOPRAM [Concomitant]
     Route: 048
  6. ESOMEPRAZOLE [Concomitant]
     Route: 048

REACTIONS (3)
  - TOOTH INFECTION [None]
  - DRUG INEFFECTIVE [None]
  - MULTIPLE SCLEROSIS [None]
